FAERS Safety Report 13037336 (Version 1)
Quarter: 2016Q4

REPORT INFORMATION
  Report Type: Report from Study
  Country: DE (occurrence: DE)
  Receive Date: 20161216
  Receipt Date: 20161216
  Transmission Date: 20170207
  Serious: Yes (Other)
  Sender: FDA-Public Use
  Company Number: DE-BIOGEN-2016BI00331897

PATIENT
  Age: 49 Year
  Sex: Male
  Weight: 84 kg

DRUGS (13)
  1. PALEXIA [Concomitant]
     Active Substance: TAPENTADOL HYDROCHLORIDE
     Indication: RESTLESS LEGS SYNDROME
     Route: 048
     Dates: start: 20160202
  2. LYRICA [Concomitant]
     Active Substance: PREGABALIN
     Indication: DYSAESTHESIA
     Route: 048
     Dates: start: 20140702
  3. TRIAMCINOLON [Concomitant]
     Indication: MUSCULOSKELETAL PAIN
     Route: 014
     Dates: start: 20151218, end: 20151218
  4. PREGABADOR [Concomitant]
     Indication: PARAESTHESIA
     Route: 048
     Dates: start: 20150407
  5. APYDAN EXTENT [Concomitant]
     Active Substance: OXCARBAZEPINE
     Indication: MUSCLE TWITCHING
     Route: 048
     Dates: start: 20151103
  6. TARGIN [Concomitant]
     Active Substance: NALOXONE HYDROCHLORIDE\OXYCODONE HYDROCHLORIDE
     Indication: PRODUCT USED FOR UNKNOWN INDICATION
     Route: 048
     Dates: start: 20151201, end: 20160202
  7. VELMETIA [Concomitant]
     Active Substance: METFORMIN\SITAGLIPTIN
     Indication: DIABETES MELLITUS
     Dosage: 50/1000
     Route: 048
     Dates: start: 20140521
  8. TYSABRI [Suspect]
     Active Substance: NATALIZUMAB
     Indication: MULTIPLE SCLEROSIS
     Route: 042
     Dates: start: 20070205, end: 20091031
  9. ZOPICLON [Concomitant]
     Active Substance: ZOPICLONE
     Indication: SLEEP DISORDER
     Dosage: IN THE EVENING
     Route: 048
     Dates: start: 20091103
  10. TYSABRI [Suspect]
     Active Substance: NATALIZUMAB
     Route: 065
     Dates: start: 20141209, end: 20161110
  11. PALEXIA [Concomitant]
     Active Substance: TAPENTADOL HYDROCHLORIDE
     Route: 048
     Dates: start: 20101213, end: 20151201
  12. EFFENTORA [Concomitant]
     Active Substance: FENTANYL CITRATE
     Indication: RESTLESS LEGS SYNDROME
     Route: 002
     Dates: start: 20120627
  13. VALSARTAN. [Concomitant]
     Active Substance: VALSARTAN
     Indication: HYPERTENSION
     Route: 048
     Dates: start: 20150409

REACTIONS (2)
  - Pneumonia [Recovered/Resolved]
  - Chronic obstructive pulmonary disease [Not Recovered/Not Resolved]

NARRATIVE: CASE EVENT DATE: 20161111
